FAERS Safety Report 5381545-7 (Version None)
Quarter: 2007Q2

REPORT INFORMATION
  Report Type: 
  Country: None (occurrence: None)
  Receive Date: 20070629
  Receipt Date: 20070219
  Transmission Date: 20071010
  Serious: Yes (Hospitalization, Other)
  Sender: FDA-Public Use
  Company Number: 2006155550

PATIENT
  Age: 97 Year
  Sex: Female
  Weight: 49 kg

DRUGS (22)
  1. ZOLOFT [Suspect]
     Indication: ANOREXIA
     Dosage: 25 MG (25 MG, 1 IN 1 D);
     Dates: start: 20000101
  2. ZOLOFT [Suspect]
     Indication: ANXIETY
     Dosage: 25 MG (25 MG, 1 IN 1 D);
     Dates: start: 20000101
  3. ZOLOFT [Suspect]
     Indication: DEPRESSED MOOD
     Dosage: 25 MG (25 MG, 1 IN 1 D);
     Dates: start: 20000101
  4. ZOLOFT [Suspect]
     Indication: DEPRESSION
     Dosage: 25 MG (25 MG, 1 IN 1 D);
     Dates: start: 20000101
  5. ZOLOFT [Suspect]
     Indication: FATIGUE
     Dosage: 25 MG (25 MG, 1 IN 1 D);
     Dates: start: 20000101
  6. ZOLOFT [Suspect]
     Indication: PARANOIA
     Dosage: 25 MG (25 MG, 1 IN 1 D);
     Dates: start: 20000101
  7. ROZEREM [Concomitant]
  8. ESTRACE [Concomitant]
  9. ALL OTHER THERAPEUTIC PRODUCTS (ALL OTHER THERAPEUTIC PRODUCTS) [Concomitant]
  10. POTASSIUM CHLORIDE [Concomitant]
  11. ACTONEL [Concomitant]
  12. LIPITOR [Concomitant]
  13. WARFARIN SODIUM [Concomitant]
  14. ARICEPT [Concomitant]
  15. ALPHAGAN [Concomitant]
  16. LUMIGAN [Concomitant]
  17. COSOPT [Concomitant]
  18. CITRACAL (CALCIUM CITRATE) [Concomitant]
  19. PERI-COLACE [Concomitant]
  20. LASIX [Concomitant]
  21. SENOKOT [Concomitant]
  22. REMERON [Concomitant]

REACTIONS (26)
  - AFFECT LABILITY [None]
  - AGITATION [None]
  - ANGER [None]
  - ANOREXIA [None]
  - ANXIETY [None]
  - ATRIAL FIBRILLATION [None]
  - CONSTIPATION [None]
  - DEMENTIA ALZHEIMER'S TYPE [None]
  - DIARRHOEA [None]
  - DIZZINESS [None]
  - FAILURE TO THRIVE [None]
  - FATIGUE [None]
  - FEAR [None]
  - FEELING ABNORMAL [None]
  - GLAUCOMA [None]
  - HYPERLIPIDAEMIA [None]
  - HYPERTENSION [None]
  - HYPOTENSION [None]
  - ILL-DEFINED DISORDER [None]
  - INSOMNIA [None]
  - NERVOUSNESS [None]
  - NEURODERMATITIS [None]
  - OEDEMA [None]
  - PARANOIA [None]
  - STASIS DERMATITIS [None]
  - VISUAL ACUITY REDUCED [None]
